FAERS Safety Report 23843734 (Version 1)
Quarter: 2024Q2

REPORT INFORMATION
  Report Type: Report from Study
  Country: TR (occurrence: TR)
  Receive Date: 20240510
  Receipt Date: 20240510
  Transmission Date: 20240716
  Serious: Yes (Death, Other)
  Sender: FDA-Public Use
  Company Number: TR-PFIZER INC-PV202400059623

PATIENT
  Sex: Female

DRUGS (5)
  1. IDARUBICIN HYDROCHLORIDE [Suspect]
     Active Substance: IDARUBICIN HYDROCHLORIDE
     Indication: Acute myeloid leukaemia
     Dosage: 20 MG/M2, CYCLIC
  2. CYTARABINE [Suspect]
     Active Substance: CYTARABINE
     Indication: Acute myeloid leukaemia
     Dosage: 10.6 G/M2
  3. CYTARABINE [Suspect]
     Active Substance: CYTARABINE
     Dosage: 1 G/M2
  4. ETOPOSIDE [Suspect]
     Active Substance: ETOPOSIDE
     Indication: Acute myeloid leukaemia
     Dosage: 1500 MG/M2, CYCLIC
  5. ETOPOSIDE [Suspect]
     Active Substance: ETOPOSIDE
     Dosage: 500 MG/M2, CYCLIC

REACTIONS (1)
  - Cardiac tamponade [Fatal]
